FAERS Safety Report 8789617 (Version 1)
Quarter: 2012Q4

REPORT INFORMATION
  Report Type: Spontaneous
  Country: US (occurrence: None)
  Receive Date: 20120910
  Receipt Date: 20120910
  Transmission Date: 20130627
  Serious: Yes (Other)
  Sender: FDA-Public Use
  Company Number: None

PATIENT
  Age: 78 Year
  Sex: Female
  Weight: 75.75 kg

DRUGS (1)
  1. ZOLEDRONIC ACID [Suspect]
     Indication: PROPHYLAXIS
     Route: 042
     Dates: start: 201204

REACTIONS (8)
  - Pain [None]
  - Muscle tightness [None]
  - Cervical vertebral fracture [None]
  - Muscle fatigue [None]
  - Myalgia [None]
  - Dizziness [None]
  - Joint swelling [None]
  - Muscle spasms [None]
